FAERS Safety Report 16376785 (Version 1)
Quarter: 2019Q2

REPORT INFORMATION
  Report Type: Spontaneous
  Country: FR (occurrence: FR)
  Receive Date: 20190531
  Receipt Date: 20190531
  Transmission Date: 20190711
  Serious: Yes (Hospitalization)
  Sender: FDA-Public Use
  Company Number: FR-PFIZER INC-2019234688

PATIENT
  Age: 54 Year
  Sex: Male

DRUGS (11)
  1. FUROSEMIDE. [Suspect]
     Active Substance: FUROSEMIDE
     Indication: OEDEMA DUE TO CARDIAC DISEASE
     Dosage: 40 MILLIGRAM, PER DAY
     Route: 048
     Dates: start: 201602
  2. OXOMEMAZINE MYLAN [Suspect]
     Active Substance: OXOMEMAZINE
     Indication: COUGH
     Dosage: UNK
     Route: 048
     Dates: start: 20190423, end: 20190428
  3. ESOMEPRAZOLE MYLAN [ESOMEPRAZOLE] [Suspect]
     Active Substance: ESOMEPRAZOLE SODIUM
     Indication: GASTROOESOPHAGEAL REFLUX DISEASE
     Dosage: 40 MILLIGRAM, PER DAY
     Route: 048
     Dates: start: 201602
  4. JOSACINE [JOSAMYCIN PROPIONATE] [Suspect]
     Active Substance: JOSAMYCIN PROPIONATE
     Indication: UPPER RESPIRATORY TRACT INFECTION
     Dosage: 2000 MILLIGRAM, DAY
     Route: 048
     Dates: start: 20190423, end: 20190429
  5. CORGARD [Suspect]
     Active Substance: NADOLOL
     Indication: HYPERTROPHIC CARDIOMYOPATHY
     Dosage: 160 MILLIGRAM, PER DAY
     Route: 048
     Dates: start: 201706
  6. ATORVASTATIN CALCIUM. [Suspect]
     Active Substance: ATORVASTATIN CALCIUM
     Indication: CARDIOVASCULAR EVENT PROPHYLAXIS
     Dosage: 20 MILLIGRAM, PER DAY
     Route: 048
     Dates: start: 201602
  7. BETAMETHASONE ACETATE [Suspect]
     Active Substance: BETAMETHASONE ACETATE
     Indication: UPPER RESPIRATORY TRACT INFECTION
     Dosage: 3 DOSAGE FORM, PER DAY
     Route: 048
     Dates: start: 20190423, end: 20190427
  8. ZOLPIDEM [Suspect]
     Active Substance: ZOLPIDEM\ZOLPIDEM TARTRATE
     Indication: INSOMNIA
     Dosage: UNK
     Route: 048
     Dates: start: 20180223
  9. JANUMET [Suspect]
     Active Substance: METFORMIN HYDROCHLORIDE\SITAGLIPTIN PHOSPHATE
     Indication: TYPE 2 DIABETES MELLITUS
     Dosage: 2 DOSAGE FORM, PER DAY
     Route: 048
     Dates: start: 201602, end: 20190504
  10. DESLORATADINE. [Suspect]
     Active Substance: DESLORATADINE
     Indication: RHINITIS ALLERGIC
     Dosage: 5 MILLIGRAM, PER DAY
     Route: 048
     Dates: start: 201602
  11. ELIQUIS [Suspect]
     Active Substance: APIXABAN
     Indication: CEREBROVASCULAR ACCIDENT PROPHYLAXIS
     Dosage: 10 MILLIGRAM, PER DAY
     Route: 048
     Dates: start: 201602

REACTIONS (1)
  - Lipase increased [Recovering/Resolving]

NARRATIVE: CASE EVENT DATE: 20190504
